FAERS Safety Report 10184087 (Version 1)
Quarter: 2014Q2

REPORT INFORMATION
  Report Type: Spontaneous
  Country: US (occurrence: US)
  Receive Date: 20140520
  Receipt Date: 20140520
  Transmission Date: 20141212
  Serious: No
  Sender: FDA-Public Use
  Company Number: US-ASTRAZENECA-2013SE72665

PATIENT
  Age: 69 Year
  Sex: Female
  Weight: 66.7 kg

DRUGS (3)
  1. BUDESONIDE [Suspect]
     Indication: INFLAMMATORY BOWEL DISEASE
     Route: 048
     Dates: start: 20130827
  2. ASACOL [Concomitant]
     Indication: INFLAMMATORY BOWEL DISEASE
     Route: 048
     Dates: start: 20130827
  3. ALPRAZOLAM [Concomitant]
     Indication: ANXIETY
     Dosage: 0.5MG TO 1MG AS NEED BID
     Route: 048
     Dates: start: 20130624

REACTIONS (4)
  - Dizziness [Unknown]
  - Visual acuity reduced [Unknown]
  - Visual impairment [Unknown]
  - Drug prescribing error [Unknown]
